FAERS Safety Report 7058937-3 (Version None)
Quarter: 2010Q4

REPORT INFORMATION
  Report Type: 
  Country: None (occurrence: None)
  Receive Date: 20101024
  Receipt Date: 20101022
  Transmission Date: 20110411
  Serious: Yes (Hospitalization)
  Sender: FDA-Public Use
  Company Number: CA-WYE-H17363810

PATIENT
  Age: 10 Year
  Sex: Female
  Weight: 43 kg

DRUGS (10)
  1. PANTO [Suspect]
     Indication: GASTROOESOPHAGEAL REFLUX DISEASE
     Route: 042
     Dates: start: 20091027, end: 20091101
  2. DEXAMETHASONE [Concomitant]
     Indication: VOMITING
     Dosage: 4 MG, 1 IN 8 HOURS
     Route: 042
     Dates: start: 20091027
  3. DIMENHYDRINATE [Concomitant]
     Dosage: 40 MG, 1 IN 6 HOURS
     Route: 042
     Dates: start: 20091027
  4. METHOTREXATE [Suspect]
     Indication: ACUTE LYMPHOCYTIC LEUKAEMIA
     Dosage: 6400 MG ONCE
     Route: 042
     Dates: start: 20091027
  5. GLEEVEC [Concomitant]
     Dosage: 400 MG
     Route: 048
  6. LEUCOVORIN CALCIUM [Concomitant]
     Dosage: 20 MG, 1 IN 3 HOURS
     Route: 042
     Dates: start: 20091029, end: 20091106
  7. ONDANSETRON [Concomitant]
     Indication: VOMITING
     Dosage: 6 MG, 1 IN 8 HOURS
     Route: 042
     Dates: start: 20091027
  8. ONDANSETRON [Concomitant]
     Indication: NAUSEA
  9. CODEINE [Concomitant]
     Dosage: 30 MG, 1 IN 4 HOURS
     Route: 048
     Dates: start: 20091027
  10. FLUCONAZOLE [Concomitant]
     Dosage: 100 MG
     Route: 048

REACTIONS (1)
  - DRUG CLEARANCE DECREASED [None]
